FAERS Safety Report 6732739-7 (Version None)
Quarter: 2010Q2

REPORT INFORMATION
  Report Type: 
  Country: None (occurrence: None)
  Receive Date: 20100519
  Receipt Date: 20100512
  Transmission Date: 20101027
  Serious: Yes (Other)
  Sender: FDA-Public Use
  Company Number: AE-BAXTER-2010BH013184

PATIENT
  Age: 14 Year
  Sex: Male

DRUGS (5)
  1. CYCLOPHOSPHAMIDE [Suspect]
     Indication: MEDULLOBLASTOMA
     Route: 065
  2. MESNA [Suspect]
     Indication: MEDULLOBLASTOMA
     Route: 065
  3. VINCRISTINE SULFATE [Suspect]
     Indication: MEDULLOBLASTOMA
     Route: 065
  4. CARBOPLATIN [Suspect]
     Indication: MEDULLOBLASTOMA
     Route: 065
  5. RADIATION [Suspect]
     Indication: MEDULLOBLASTOMA

REACTIONS (1)
  - VENOOCCLUSIVE LIVER DISEASE [None]
